FAERS Safety Report 6252188-8 (Version None)
Quarter: 2009Q2

REPORT INFORMATION
  Report Type: 
  Country: None (occurrence: None)
  Receive Date: 20090629
  Receipt Date: 20090615
  Transmission Date: 20091009
  Serious: Yes (Other)
  Sender: FDA-Public Use
  Company Number: PAR_03036_2009

PATIENT
  Sex: Female
  Weight: 2.6 kg

DRUGS (1)
  1. METHYLDOPA [Suspect]
     Indication: HYPERTENSION
     Dosage: (250 MG BID)
     Route: 064

REACTIONS (7)
  - BLOOD BILIRUBIN UNCONJUGATED INCREASED [None]
  - CAESAREAN SECTION [None]
  - CYSTITIS KLEBSIELLA [None]
  - JAUNDICE NEONATAL [None]
  - LABORATORY TEST ABNORMAL [None]
  - MATERNAL DRUGS AFFECTING FOETUS [None]
  - PLATELET COUNT INCREASED [None]
